FAERS Safety Report 18510297 (Version 1)
Quarter: 2020Q4

REPORT INFORMATION
  Report Type: Spontaneous
  Country: US (occurrence: US)
  Receive Date: 20201116
  Receipt Date: 20201116
  Transmission Date: 20210114
  Serious: Yes (Life-Threatening, Hospitalization)
  Sender: FDA-Public Use
  Company Number: None

PATIENT
  Age: 54 Year
  Sex: Female
  Weight: 75 kg

DRUGS (3)
  1. FAMOTIDINE 40MG DAILY [Concomitant]
     Dates: start: 20200215
  2. EMPAGLIFLOZIN [Suspect]
     Active Substance: EMPAGLIFLOZIN
     Indication: TYPE 2 DIABETES MELLITUS
     Route: 048
     Dates: start: 20200215, end: 20201115
  3. PHENTERMINE 37.5MG DAILY [Concomitant]
     Dates: start: 20200215

REACTIONS (3)
  - Diabetic ketoacidosis [None]
  - Blood potassium decreased [None]
  - Acute kidney injury [None]

NARRATIVE: CASE EVENT DATE: 20201115
